FAERS Safety Report 7494290-9 (Version None)
Quarter: 2011Q2

REPORT INFORMATION
  Report Type: 
  Country: None (occurrence: None)
  Receive Date: 20110520
  Receipt Date: 20110506
  Transmission Date: 20111010
  Serious: Yes (Life-Threatening, Hospitalization, Other)
  Sender: FDA-Public Use
  Company Number: DE-WATSON-2011-03393

PATIENT
  Age: 67 Year
  Sex: Female
  Weight: 93 kg

DRUGS (8)
  1. IBUPROFEN [Suspect]
     Indication: SPINAL OSTEOARTHRITIS
     Dosage: PRN
     Route: 048
     Dates: end: 20101102
  2. RAMIPRIL [Suspect]
     Indication: PRODUCT USED FOR UNKNOWN INDICATION
     Dosage: 2X1 DAILY
     Route: 048
     Dates: start: 20101105, end: 20101129
  3. AMLODIPINE BESYLATE [Suspect]
     Indication: HYPERTENSION
     Dosage: 5 - 10MG, DAILY
     Route: 048
     Dates: start: 20100923, end: 20101109
  4. RAMIPRIL [Suspect]
     Dosage: 1X1 DAILY
     Dates: start: 20101101
  5. AMIODARONE HYDROCHLORIDE [Suspect]
     Indication: ATRIAL FIBRILLATION
     Dosage: 200 - 600MG, DAILY
     Route: 048
     Dates: start: 20101103, end: 20101109
  6. IBUPROFEN [Suspect]
     Indication: SPINAL OSTEOARTHRITIS
     Dosage: 400 MG, DAILY
     Route: 048
     Dates: start: 20101103, end: 20101103
  7. RAMIPRIL [Suspect]
     Indication: PRODUCT USED FOR UNKNOWN INDICATION
     Dosage: 2.5 MG, BID
     Route: 048
     Dates: start: 20100923, end: 20101102
  8. DICLOFENAC SODIUM [Suspect]
     Indication: SPINAL OSTEOARTHRITIS
     Dosage: IF REQUIRED
     Route: 048
     Dates: end: 20101102

REACTIONS (1)
  - RENAL FAILURE ACUTE [None]
